FAERS Safety Report 15485520 (Version 1)
Quarter: 2018Q4

REPORT INFORMATION
  Report Type: Report from Study
  Country: BR (occurrence: BR)
  Receive Date: 20181010
  Receipt Date: 20181010
  Transmission Date: 20190205
  Serious: Yes (Death)
  Sender: FDA-Public Use
  Company Number: PHHY2018BR121986

PATIENT
  Age: 78 Year
  Sex: Female
  Weight: 50 kg

DRUGS (3)
  1. ENTRESTO [Suspect]
     Active Substance: SACUBITRIL\VALSARTAN
     Indication: ARTERIOSCLEROSIS
     Dosage: UNK UNK (LOWEST DOSAGE, 40 AND SOMETHING), BID (EVERY 12 HOURS, ONE IN MORNING AT 8:00 AND AT 20:00)
     Route: 048
     Dates: start: 201805, end: 201806
  2. ENTRESTO [Suspect]
     Active Substance: SACUBITRIL\VALSARTAN
     Dosage: UNK (STRONGER DOSE, 97/SOMETHING), BID (EVERY 12 HOURS, ONE IN MORNING AT 8:00 AND AT 20:00)
     Route: 048
     Dates: start: 201807
  3. ENTRESTO [Suspect]
     Active Substance: SACUBITRIL\VALSARTAN
     Dosage: 100 MG (49/51 MG), BID (EVERY 12 HOURS, ONE IN MORNING AT 8:00 AND AT 20:00)
     Route: 048
     Dates: start: 201806, end: 201807

REACTIONS (4)
  - Myocardial infarction [Fatal]
  - Malaise [Unknown]
  - Fatigue [Unknown]
  - Product use in unapproved indication [Unknown]

NARRATIVE: CASE EVENT DATE: 201805
